FAERS Safety Report 4716527-9 (Version None)
Quarter: 2005Q3

REPORT INFORMATION
  Report Type: 
  Country: None (occurrence: None)
  Receive Date: 20050714
  Receipt Date: 20050705
  Transmission Date: 20060218
  Serious: Yes (Other)
  Sender: FDA-Public Use
  Company Number: 2005-03-1470

PATIENT
  Age: 34 Year
  Sex: Female
  Weight: 56.6996 kg

DRUGS (6)
  1. NASONEX [Suspect]
     Indication: SINUSITIS
     Dosage: UNK-2SP/N QD* NASAL SPRAY
     Route: 045
     Dates: start: 20040801, end: 20050101
  2. NASONEX [Suspect]
     Indication: SINUSITIS
     Dosage: UNK-2SP/N QD* NASAL SPRAY
     Route: 045
     Dates: start: 20040801
  3. NASONEX [Suspect]
     Indication: SINUSITIS
     Dosage: UNK-2SP/N QD* NASAL SPRAY
     Route: 045
     Dates: start: 20050101
  4. SYMBICORT (BUDESONIDE/FORMOTEROL) [Concomitant]
  5. PREVACID [Concomitant]
  6. ADVAIR (SALMETEROL/FLUTICASONE) [Concomitant]

REACTIONS (1)
  - ANOSMIA [None]
